FAERS Safety Report 22982250 (Version 2)
Quarter: 2023Q4

REPORT INFORMATION
  Report Type: Spontaneous
  Country: US (occurrence: US)
  Receive Date: 20230926
  Receipt Date: 20231010
  Transmission Date: 20240110
  Serious: Yes (Other)
  Sender: FDA-Public Use
  Company Number: US-NOVOPROD-1117097

PATIENT
  Age: 10 Year
  Sex: Male

DRUGS (2)
  1. SOGROYA [Suspect]
     Active Substance: SOMAPACITAN-BECO
     Indication: Product used for unknown indication
     Dosage: 5.0 MG
     Route: 058
     Dates: start: 20230820
  2. SOGROYA [Suspect]
     Active Substance: SOMAPACITAN-BECO
     Dosage: 0.5 MG
     Route: 058
     Dates: start: 20230912

REACTIONS (7)
  - Seizure [Recovered/Resolved]
  - Anxiety [Recovered/Resolved]
  - Vision blurred [Unknown]
  - Myalgia [Unknown]
  - Headache [Recovered/Resolved]
  - Arthralgia [Recovered/Resolved]
  - Arthralgia [Unknown]

NARRATIVE: CASE EVENT DATE: 20230903
